FAERS Safety Report 6553090-4 (Version None)
Quarter: 2010Q1

REPORT INFORMATION
  Report Type: 
  Country: None (occurrence: None)
  Receive Date: 20100127
  Receipt Date: 20090105
  Transmission Date: 20100710
  Serious: No
  Sender: FDA-Public Use
  Company Number: A0762227A

PATIENT
  Age: 64 Year
  Sex: Female

DRUGS (2)
  1. IMITREX [Suspect]
     Indication: MIGRAINE
     Route: 042
  2. IMITREX [Suspect]

REACTIONS (2)
  - DRUG INEFFECTIVE [None]
  - HEADACHE [None]
